FAERS Safety Report 7794068-2 (Version None)
Quarter: 2011Q4

REPORT INFORMATION
  Report Type: 
  Country: None (occurrence: None)
  Receive Date: 20111004
  Receipt Date: 20110922
  Transmission Date: 20120403
  Serious: Yes (Other)
  Sender: FDA-Public Use
  Company Number: US-JNJFOC-20110910093

PATIENT
  Sex: Male
  Weight: 108.86 kg

DRUGS (6)
  1. REMICADE [Suspect]
     Indication: PSORIATIC ARTHROPATHY
     Route: 042
     Dates: start: 20080301
  2. OMEPRAZOLE [Concomitant]
     Indication: GASTROOESOPHAGEAL REFLUX DISEASE
     Route: 048
  3. POTASSIUM CITRATE [Concomitant]
     Indication: PROPHYLAXIS
     Dosage: DAILY
     Route: 048
  4. DICLOFENAC [Concomitant]
     Indication: CARDIAC DISORDER
     Route: 048
  5. INDAPAMIDE [Concomitant]
     Indication: DIURETIC THERAPY
     Dosage: DAILY
     Route: 048
  6. LIPITOR [Concomitant]
     Indication: BLOOD CHOLESTEROL INCREASED
     Dosage: DAILY
     Route: 048

REACTIONS (2)
  - SQUAMOUS CELL CARCINOMA OF SKIN [None]
  - BASAL CELL CARCINOMA [None]
